FAERS Safety Report 7394499-9 (Version None)
Quarter: 2011Q2

REPORT INFORMATION
  Report Type: 
  Country: None (occurrence: None)
  Receive Date: 20110405
  Receipt Date: 20110324
  Transmission Date: 20111010
  Serious: Yes (Hospitalization)
  Sender: FDA-Public Use
  Company Number: PHHY2011BR24698

PATIENT

DRUGS (2)
  1. EXELON [Suspect]
     Dosage: 9MG/5CM2
     Route: 062
  2. EXELON [Suspect]
     Dosage: 18MG/10CM2, ONE PATCH DAILY
     Route: 062

REACTIONS (4)
  - PROTHROMBIN TIME PROLONGED [None]
  - INTERNATIONAL NORMALISED RATIO INCREASED [None]
  - HAEMATURIA [None]
  - COAGULOPATHY [None]
